FAERS Safety Report 5316505-5 (Version None)
Quarter: 2007Q2

REPORT INFORMATION
  Report Type: 
  Country: None (occurrence: None)
  Receive Date: 20070430
  Receipt Date: 20070420
  Transmission Date: 20071010
  Serious: Yes (Hospitalization, Other)
  Sender: FDA-Public Use
  Company Number: 2007SP007026

PATIENT
  Age: 61 Year
  Sex: Male

DRUGS (4)
  1. CELESTAMINE TAB [Suspect]
     Indication: ECZEMA
     Dosage: 2DF,QD; PO
     Route: 048
     Dates: start: 20070202, end: 20070226
  2. OXACILLIN [Suspect]
     Indication: ECZEMA
     Dosage: 6 DF; QD; PO
     Route: 048
     Dates: start: 20070202, end: 20070209
  3. DAFLON (CAPIVEN) [Suspect]
     Indication: ECZEMA
     Dosage: 6 DF; QD; PO
     Route: 048
     Dates: start: 20070202, end: 20070218
  4. NERISONE [Suspect]
     Indication: ECZEMA
     Dosage: 1 DF; QD; TOP
     Route: 061
     Dates: start: 20070202, end: 20070218

REACTIONS (4)
  - DIABETES MELLITUS [None]
  - DISEASE PROGRESSION [None]
  - ECZEMA [None]
  - NO THERAPEUTIC RESPONSE [None]
